FAERS Safety Report 13443703 (Version 7)
Quarter: 2017Q3

REPORT INFORMATION
  Report Type: Spontaneous
  Country: US (occurrence: US)
  Receive Date: 20170414
  Receipt Date: 20170907
  Transmission Date: 20171127
  Serious: Yes (Other)
  Sender: FDA-Public Use
  Company Number: US-GLAXOSMITHKLINE-US2017051778

PATIENT
  Sex: Male

DRUGS (2)
  1. VENTOLIN HFA [Suspect]
     Active Substance: ALBUTEROL SULFATE
     Indication: PRODUCT USED FOR UNKNOWN INDICATION
     Dosage: 1 PUFF(S), TID
  2. TRIAMCINOLONE CREAM [Concomitant]
     Active Substance: TRIAMCINOLONE

REACTIONS (4)
  - Drug dose omission [Unknown]
  - Respiratory distress [Unknown]
  - Product quality issue [Unknown]
  - Asthma [Unknown]
